FAERS Safety Report 4471066-8 (Version None)
Quarter: 2004Q4

REPORT INFORMATION
  Report Type: 
  Country: None (occurrence: None)
  Receive Date: 20041011
  Receipt Date: 20040930
  Transmission Date: 20050328
  Serious: Yes (Death)
  Sender: FDA-Public Use
  Company Number: IT-JNJFOC-20041001057

PATIENT
  Age: 49 Year
  Sex: Male

DRUGS (4)
  1. REMICADE [Suspect]
     Indication: PERIANAL ABSCESS
     Route: 042
  2. REMICADE [Suspect]
     Indication: CROHN'S DISEASE
     Route: 042
  3. METRONIDAZOLE [Concomitant]
  4. MESALAMINE [Concomitant]

REACTIONS (1)
  - BILE DUCT CANCER [None]
